FAERS Safety Report 17065169 (Version 9)
Quarter: 2020Q2

REPORT INFORMATION
  Report Type: Spontaneous
  Country: US (occurrence: US)
  Receive Date: 20191122
  Receipt Date: 20200501
  Transmission Date: 20200713
  Serious: No
  Sender: FDA-Public Use
  Company Number: US-ACTELION-A-US2019-198504

PATIENT
  Age: 59 Year
  Sex: Female
  Weight: 98.41 kg

DRUGS (2)
  1. OPSUMIT [Suspect]
     Active Substance: MACITENTAN
     Indication: PULMONARY HYPERTENSION
     Dosage: 10 MG, QD
     Route: 048
     Dates: start: 20191006
  2. ADEMPAS [Concomitant]
     Active Substance: RIOCIGUAT

REACTIONS (18)
  - Mean cell volume increased [Unknown]
  - Laboratory test abnormal [Unknown]
  - Abdominal distension [Unknown]
  - Rhinorrhoea [Unknown]
  - Flatulence [Unknown]
  - Constipation [Recovering/Resolving]
  - Lower respiratory tract congestion [Unknown]
  - Neutrophil count decreased [Unknown]
  - Weight increased [Unknown]
  - Mean cell haemoglobin increased [Unknown]
  - Blood urea nitrogen/creatinine ratio increased [Unknown]
  - Fluid retention [Unknown]
  - Sinusitis [Unknown]
  - Blood potassium decreased [Unknown]
  - Cough [Unknown]
  - Nasopharyngitis [Unknown]
  - Lacrimation increased [Unknown]
  - Carbon dioxide abnormal [Unknown]

NARRATIVE: CASE EVENT DATE: 20191107
